FAERS Safety Report 8393725-7 (Version None)
Quarter: 2012Q2

REPORT INFORMATION
  Report Type: 
  Country: None (occurrence: None)
  Receive Date: 20120530
  Receipt Date: 20120524
  Transmission Date: 20120825
  Serious: Yes (Hospitalization)
  Sender: FDA-Public Use
  Company Number: US-BIOGENIDEC-2012BI018165

PATIENT
  Sex: Female

DRUGS (4)
  1. AVONEX [Concomitant]
     Route: 030
  2. TYSABRI [Suspect]
     Route: 042
     Dates: start: 20100113, end: 20120227
  3. TYSABRI [Suspect]
     Indication: MULTIPLE SCLEROSIS
     Route: 042
  4. AVONEX [Concomitant]
     Indication: MULTIPLE SCLEROSIS
     Route: 030
     Dates: start: 20090105, end: 20090310

REACTIONS (1)
  - MULTIPLE SCLEROSIS RELAPSE [None]
